FAERS Safety Report 11048725 (Version 1)
Quarter: 2015Q2

REPORT INFORMATION
  Report Type: Report from Study
  Country: US (occurrence: US)
  Receive Date: 20150420
  Receipt Date: 20150420
  Transmission Date: 20150821
  Serious: Yes (Hospitalization, Other)
  Sender: FDA-Public Use
  Company Number: US-AMGEN-USASL2015036299

PATIENT
  Age: 52 Year
  Sex: Male

DRUGS (7)
  1. MAGNESIUM SULFATE. [Concomitant]
     Active Substance: MAGNESIUM SULFATE
  2. DEXAMETHASONE. [Concomitant]
     Active Substance: DEXAMETHASONE
     Route: 048
  3. KYPROLIS [Suspect]
     Active Substance: CARFILZOMIB
     Indication: PLASMA CELL MYELOMA
     Dosage: 58 MG, 2 TIMES/WK
     Route: 042
     Dates: start: 20150112, end: 20150225
  4. MYLANTA                            /00036701/ [Concomitant]
  5. PEPCID [Concomitant]
     Active Substance: FAMOTIDINE
  6. ACETAMINOPHEN. [Concomitant]
     Active Substance: ACETAMINOPHEN
  7. POTASSIUM CHLORIDE. [Concomitant]
     Active Substance: POTASSIUM CHLORIDE

REACTIONS (6)
  - Neutropenia [Unknown]
  - Hypertension [Recovering/Resolving]
  - Drug intolerance [Not Recovered/Not Resolved]
  - Respiratory disorder [Unknown]
  - Pneumonia [Unknown]
  - Plasma cell myeloma [Not Recovered/Not Resolved]

NARRATIVE: CASE EVENT DATE: 201502
